FAERS Safety Report 7157560-X (Version None)
Quarter: 2010Q4

REPORT INFORMATION
  Report Type: 
  Country: None (occurrence: None)
  Receive Date: 20101130
  Receipt Date: 20101025
  Transmission Date: 20110411
  Serious: Yes (Hospitalization, Other)
  Sender: FDA-Public Use
  Company Number: DSA_44213_2010

PATIENT
  Age: 69 Year
  Sex: Male

DRUGS (8)
  1. ENALAPRIL MALEATE [Suspect]
     Indication: PRODUCT USED FOR UNKNOWN INDICATION
     Dosage: (DF ORAL)
     Route: 048
  2. BLINDED THERAPY [Suspect]
     Indication: PRODUCT USED FOR UNKNOWN INDICATION
     Dosage: (DF ORAL)
     Route: 048
     Dates: start: 20090906, end: 20091125
  3. ATORVASTATIN CALCIUM [Concomitant]
  4. METFORMIN HCL [Concomitant]
  5. LASIX [Concomitant]
  6. NORVASC [Concomitant]
  7. ASPIRIN [Concomitant]
  8. CLOPIDOGREL BISULFATE [Concomitant]

REACTIONS (3)
  - ACUTE MYOCARDIAL INFARCTION [None]
  - ANGIOEDEMA [None]
  - PROTRUSION TONGUE [None]
